FAERS Safety Report 21423267 (Version 1)
Quarter: 2022Q4

REPORT INFORMATION
  Report Type: Spontaneous
  Country: US (occurrence: None)
  Receive Date: 20221006
  Receipt Date: 20221006
  Transmission Date: 20230113
  Serious: Yes (Disabling, Other)
  Sender: FDA-Public Use
  Company Number: None

PATIENT
  Age: 26 Year
  Sex: Male
  Weight: 80.1 kg

DRUGS (1)
  1. SERTRALINE [Suspect]
     Active Substance: SERTRALINE HYDROCHLORIDE
     Indication: Depression
     Dosage: OTHER QUANTITY : 1 TABLET(S);?FREQUENCY : DAILY;?
     Route: 048
     Dates: start: 20210903, end: 20220101

REACTIONS (8)
  - Anorgasmia [None]
  - Erectile dysfunction [None]
  - Sexual dysfunction [None]
  - Affective disorder [None]
  - Feeling abnormal [None]
  - Feeling abnormal [None]
  - Thinking abnormal [None]
  - Sexual dysfunction [None]

NARRATIVE: CASE EVENT DATE: 20211001
